FAERS Safety Report 14579595 (Version 1)
Quarter: 2018Q1

REPORT INFORMATION
  Report Type: Spontaneous
  Country: US (occurrence: US)
  Receive Date: 20180227
  Receipt Date: 20180227
  Transmission Date: 20180509
  Serious: Yes (Other)
  Sender: FDA-Public Use
  Company Number: US-GLAXOSMITHKLINE-US2018029103

PATIENT
  Age: 21 Year
  Sex: Female

DRUGS (1)
  1. SENSODYNE REPAIR AND PROTECT [Suspect]
     Active Substance: STANNOUS FLUORIDE
     Indication: DENTAL CARE
     Dosage: UNK
     Dates: start: 20180217, end: 20180220

REACTIONS (1)
  - Chemical burn of gastrointestinal tract [Recovered/Resolved]

NARRATIVE: CASE EVENT DATE: 20180217
